FAERS Safety Report 12453728 (Version 1)
Quarter: 2016Q2

REPORT INFORMATION
  Report Type: Spontaneous
  Country: US (occurrence: US)
  Receive Date: 20160609
  Receipt Date: 20160609
  Transmission Date: 20160815
  Serious: No
  Sender: FDA-Public Use
  Company Number: US-ASTRAZENECA-2016SE52844

PATIENT
  Sex: Female
  Weight: 70.3 kg

DRUGS (3)
  1. PREVACID [Concomitant]
     Active Substance: LANSOPRAZOLE
     Indication: GASTROOESOPHAGEAL REFLUX DISEASE
     Dosage: DOSAGE FORM: UNSPECIFIED, 15 YEARS
     Route: 065
  2. AZELASTINE [Suspect]
     Active Substance: AZELASTINE
     Indication: MULTIPLE ALLERGIES
     Dosage: DOSAGE FORM: UNSPECIFIED
     Route: 065
  3. RHINOCORT ALLERGY [Suspect]
     Active Substance: BUDESONIDE
     Indication: MULTIPLE ALLERGIES
     Route: 055
     Dates: end: 20160430

REACTIONS (1)
  - Visual impairment [Recovered/Resolved]
